FAERS Safety Report 20967148 (Version 1)
Quarter: 2022Q2

REPORT INFORMATION
  Report Type: Report from Study
  Country: US (occurrence: US)
  Receive Date: 20220616
  Receipt Date: 20220616
  Transmission Date: 20220721
  Serious: Yes (Hospitalization, Other)
  Sender: FDA-Public Use
  Company Number: US-HBP-2022US026329

PATIENT
  Sex: Female

DRUGS (3)
  1. TRUSELTIQ [Suspect]
     Active Substance: INFIGRATINIB
     Indication: Cholangiocarcinoma
     Dosage: 125 MILLIGRAM, QD
     Route: 048
     Dates: start: 20220317, end: 20220322
  2. TRUSELTIQ [Suspect]
     Active Substance: INFIGRATINIB
     Dosage: 100 MILLIGRAM, QD
     Route: 048
     Dates: start: 20220322
  3. LASIX [Concomitant]
     Active Substance: FUROSEMIDE
     Indication: Peripheral swelling
     Dosage: 20 MILLIGRAM, BID

REACTIONS (24)
  - Malignant neoplasm progression [Unknown]
  - Cellulitis [Unknown]
  - Neuropathy peripheral [Unknown]
  - Pneumonia [Unknown]
  - Stent placement [Unknown]
  - Abdominal cavity drainage [Unknown]
  - Retinopathy [Unknown]
  - Catheter placement [Unknown]
  - Incorrect dosage administered [Not Recovered/Not Resolved]
  - Disorientation [Unknown]
  - Tooth injury [Unknown]
  - Tooth extraction [Unknown]
  - Exostosis of jaw [Unknown]
  - Paracentesis [Unknown]
  - Drain placement [Unknown]
  - Erythema [Recovering/Resolving]
  - Peripheral swelling [Unknown]
  - Condition aggravated [Unknown]
  - Fatigue [Unknown]
  - Dry mouth [Unknown]
  - Alopecia [Unknown]
  - Constipation [Unknown]
  - Diarrhoea [Unknown]
  - Decreased appetite [Unknown]
